FAERS Safety Report 11020298 (Version 2)
Quarter: 2020Q4

REPORT INFORMATION
  Report Type: Spontaneous
  Country: PT (occurrence: PT)
  Receive Date: 20150413
  Receipt Date: 20201015
  Transmission Date: 20210113
  Serious: Yes (Hospitalization)
  Sender: FDA-Public Use
  Company Number: PHHY2015PT042679

PATIENT
  Age: 79 Year
  Sex: Male

DRUGS (1)
  1. AMOXICILLIN, CLAVULANIC ACID [Suspect]
     Active Substance: AMOXICILLIN\CLAVULANIC ACID
     Indication: STOMATITIS
     Dosage: 875 MG + 125 MG
     Route: 065

REACTIONS (6)
  - Encephalitis [Recovering/Resolving]
  - Confusional state [Recovered/Resolved]
  - Photophobia [Recovering/Resolving]
  - Headache [Recovering/Resolving]
  - Incoherent [Recovering/Resolving]
  - Disorientation [Recovering/Resolving]
